FAERS Safety Report 5472023-5 (Version None)
Quarter: 2007Q3

REPORT INFORMATION
  Report Type: 
  Country: None (occurrence: None)
  Receive Date: 20070928
  Receipt Date: 20070917
  Transmission Date: 20080115
  Serious: Yes (Hospitalization)
  Sender: FDA-Public Use
  Company Number: CH-PFIZER INC-2007077384

PATIENT
  Age: 89 Year
  Sex: Female

DRUGS (7)
  1. LYRICA [Suspect]
     Indication: POLYNEUROPATHY
     Route: 048
     Dates: start: 20070701, end: 20070701
  2. PLAVIX [Concomitant]
     Dosage: DAILY DOSE:75MG-FREQ:PER DAY
     Route: 048
  3. TORSEMIDE [Concomitant]
     Dosage: DAILY DOSE:5MG-FREQ:PER DAY
     Route: 048
  4. ENATEC [Concomitant]
     Dosage: DAILY DOSE:20MG-FREQ:PER DAY
     Route: 048
  5. NORVASC [Concomitant]
     Dosage: DAILY DOSE:5MG-FREQ:PER DAY
     Route: 048
  6. SORTIS [Concomitant]
     Route: 048
  7. PANTOPRAZOLE SODIUM [Concomitant]
     Dosage: DAILY DOSE:40MG-FREQ:PER DAY
     Route: 048

REACTIONS (2)
  - HYPOTENSION [None]
  - SINUS BRADYCARDIA [None]
